FAERS Safety Report 7755684-7 (Version None)
Quarter: 2011Q3

REPORT INFORMATION
  Report Type: 
  Country: None (occurrence: None)
  Receive Date: 20110914
  Receipt Date: 20110901
  Transmission Date: 20111222
  Serious: Yes (Hospitalization)
  Sender: FDA-Public Use
  Company Number: 1000023112

PATIENT
  Age: 54 Year
  Sex: Female

DRUGS (3)
  1. ZOPLICONE [Concomitant]
  2. ALCOHOL (ETHANOL) [Suspect]
  3. CITALOPRAM HYDROBROMIDE [Suspect]
     Indication: MAJOR DEPRESSION
     Dosage: 20 MG (20 MG,1 IN 1 D) (ONCE (OVERDOSE OF UNKNOWN AMOUNT))

REACTIONS (9)
  - VENTRICULAR FIBRILLATION [None]
  - ELECTROCARDIOGRAM QT PROLONGED [None]
  - BLOOD PRESSURE DECREASED [None]
  - JUGULAR VEIN DISTENSION [None]
  - HYPOKALAEMIA [None]
  - HYPERLACTACIDAEMIA [None]
  - CONVULSION [None]
  - OXYGEN SATURATION DECREASED [None]
  - METABOLIC ACIDOSIS [None]
